FAERS Safety Report 7874662-0 (Version None)
Quarter: 2011Q4

REPORT INFORMATION
  Report Type: 
  Country: None (occurrence: None)
  Receive Date: 20111031
  Receipt Date: 20111027
  Transmission Date: 20120403
  Serious: Yes (Hospitalization)
  Sender: FDA-Public Use
  Company Number: ES-PFIZER INC-2011262113

PATIENT
  Age: 83 Year
  Sex: Female

DRUGS (6)
  1. ALDACTONE [Suspect]
     Indication: CARDIAC FAILURE CONGESTIVE
     Dosage: 25 MG, 1X/DAY
     Route: 048
     Dates: start: 20100201, end: 20110329
  2. DISTRANEURINE [Concomitant]
     Indication: INSOMNIA
     Dosage: 192 MG, 1X/DAY
     Route: 048
     Dates: start: 20100901
  3. SINTROM [Concomitant]
     Route: 048
  4. FUROSEMIDE [Concomitant]
     Indication: CARDIAC FAILURE CONGESTIVE
     Dosage: 40 MG, 1X/DAY
     Route: 048
     Dates: start: 20080101
  5. ENALAPRIL MALEATE [Interacting]
     Indication: CARDIAC FAILURE CONGESTIVE
     Dosage: 10 MG, 1X/DAY
     Route: 048
     Dates: start: 20080101, end: 20110329
  6. COROPRES [Concomitant]
     Indication: ATRIAL FIBRILLATION
     Dosage: 7.5 MG, 2X/DAY
     Route: 048
     Dates: start: 20080101

REACTIONS (4)
  - SUPRAVENTRICULAR TACHYCARDIA [None]
  - RENAL FAILURE ACUTE [None]
  - HYPERKALAEMIA [None]
  - DRUG INTERACTION [None]
